FAERS Safety Report 8160960-2 (Version None)
Quarter: 2012Q1

REPORT INFORMATION
  Report Type: 
  Country: None (occurrence: None)
  Receive Date: 20120223
  Receipt Date: 20120215
  Transmission Date: 20120608
  Serious: Yes (Other)
  Sender: FDA-Public Use
  Company Number: US-ASTRAZENECA-2011SE47042

PATIENT
  Age: 48 Year
  Sex: Male

DRUGS (8)
  1. SEROQUEL [Suspect]
     Route: 048
  2. SEROQUEL [Suspect]
     Indication: BIPOLAR DISORDER
     Route: 048
  3. GLYBURIDE [Concomitant]
  4. NEXIUM [Suspect]
     Route: 048
  5. MORPHINE [Concomitant]
  6. MEDICATION [Concomitant]
     Indication: NAUSEA
  7. METFORMIN HCL [Concomitant]
  8. ROXYCODONE [Concomitant]

REACTIONS (4)
  - DIABETES MELLITUS [None]
  - MYOCARDIAL INFARCTION [None]
  - INTERVERTEBRAL DISC PROTRUSION [None]
  - ACCIDENT AT WORK [None]
